FAERS Safety Report 5588337-4 (Version None)
Quarter: 2008Q1

REPORT INFORMATION
  Report Type: 
  Country: None (occurrence: None)
  Receive Date: 20080111
  Receipt Date: 20071105
  Transmission Date: 20080703
  Serious: Yes (Other)
  Sender: FDA-Public Use
  Company Number: A0664030A

PATIENT
  Age: 53 Year
  Sex: Female

DRUGS (6)
  1. TYKERB [Suspect]
     Indication: BREAST CANCER
     Dosage: 5TAB PER DAY
     Route: 048
     Dates: start: 20070712, end: 20071010
  2. XELODA [Suspect]
     Indication: BREAST CANCER
     Dosage: 1000MG TWICE PER DAY
     Route: 065
     Dates: start: 20070712, end: 20071010
  3. CALCIUM GLUCONATE [Concomitant]
  4. EFFEXOR [Concomitant]
  5. PRILOSEC [Concomitant]
  6. VITAMINS [Concomitant]

REACTIONS (2)
  - DIARRHOEA [None]
  - PALMAR-PLANTAR ERYTHRODYSAESTHESIA SYNDROME [None]
